FAERS Safety Report 6410955-1 (Version None)
Quarter: 2009Q4

REPORT INFORMATION
  Report Type: 
  Country: None (occurrence: None)
  Receive Date: 20091020
  Receipt Date: 20091020
  Transmission Date: 20100525
  Serious: Yes (Other)
  Sender: FDA-Public Use
  Company Number: None

PATIENT
  Age: 71 Year
  Sex: Female
  Weight: 73.4827 kg

DRUGS (2)
  1. RITUXAN [Suspect]
     Indication: MANTLE CELL LYMPHOMA
     Dosage: 600 MG EVERY 12 WEEKS IV DRIP
     Route: 041
     Dates: start: 20040701, end: 20060601
  2. RITUXAN [Suspect]
     Indication: MANTLE CELL LYMPHOMA
     Dosage: 600 MG EVERY 12 WEEKS IV DRIP
     Route: 041
     Dates: start: 20080801, end: 20090401

REACTIONS (1)
  - NEUTROPENIA [None]
